FAERS Safety Report 18502336 (Version 1)
Quarter: 2020Q4

REPORT INFORMATION
  Report Type: Other
  Country: US (occurrence: US)
  Receive Date: 20201113
  Receipt Date: 20201113
  Transmission Date: 20210114
  Serious: No
  Sender: FDA-Public Use
  Company Number: US-LEADIANT BIOSCIENCES INC-2020STPI000310

PATIENT
  Age: 50 Year
  Sex: Female

DRUGS (1)
  1. CYSTARAN [Suspect]
     Active Substance: CYSTEAMINE HYDROCHLORIDE
     Indication: CYSTINOSIS
     Dosage: ONE DROP BOTH EYES EVERY WAKING HOUR
     Route: 047
     Dates: start: 20180609

REACTIONS (2)
  - Product dose omission issue [Unknown]
  - Eye irritation [Unknown]

NARRATIVE: CASE EVENT DATE: 202001
